FAERS Safety Report 12289889 (Version 1)
Quarter: 2016Q2

REPORT INFORMATION
  Report Type: Spontaneous
  Country: CA (occurrence: US)
  Receive Date: 20160421
  Receipt Date: 20160421
  Transmission Date: 20160815
  Serious: Yes (Hospitalization, Other)
  Sender: FDA-Public Use
  Company Number: CA-SCIEGEN PHARMACEUTICALS INC-2016SCILIT00080

PATIENT
  Age: 14 Year
  Sex: Female

DRUGS (1)
  1. LAMOTRIGINE TABLETS [Suspect]
     Active Substance: LAMOTRIGINE
     Indication: PARTIAL SEIZURES
     Dosage: UNK
     Route: 065

REACTIONS (13)
  - Organising pneumonia [Unknown]
  - Chills [Unknown]
  - Drug reaction with eosinophilia and systemic symptoms [Unknown]
  - Hypoxia [Unknown]
  - Pulmonary haemorrhage [Unknown]
  - Neutropenia [Unknown]
  - Rash maculo-papular [Unknown]
  - Anaemia [Unknown]
  - Cough [Unknown]
  - Lymphadenopathy mediastinal [Unknown]
  - Pyrexia [Recovered/Resolved]
  - Respiratory distress [Unknown]
  - Inflammatory marker test [Unknown]
